FAERS Safety Report 7139575-0 (Version None)
Quarter: 2010Q4

REPORT INFORMATION
  Report Type: 
  Country: None (occurrence: None)
  Receive Date: 20101206
  Receipt Date: 20100810
  Transmission Date: 20110411
  Serious: Yes (Other)
  Sender: FDA-Public Use
  Company Number: US-ABBOTT-10P-163-0689564-00

PATIENT
  Age: 39 Year
  Sex: Female

DRUGS (8)
  1. RITONAVIR [Suspect]
     Indication: ANTIRETROVIRAL THERAPY
     Dosage: TAKING AT CONCEPTION
     Route: 048
  2. KALETRA [Suspect]
     Indication: ANTIRETROVIRAL THERAPY
     Dosage: NOT TAKING AT CONCEPTION, 4TAB/CAP DAILY
     Route: 048
     Dates: start: 20100324, end: 20100513
  3. DARUNAVIR ETHANOLATE [Suspect]
     Indication: ANTIRETROVIRAL THERAPY
     Dosage: TAKING AT CONCEPTION
     Route: 048
     Dates: start: 20090101, end: 20091201
  4. DARUNAVIR ETHANOLATE [Suspect]
     Dosage: TAKING AT CONCEPTION
     Route: 048
     Dates: start: 20100514
  5. EMTRICITABINE [Suspect]
     Indication: ANTIRETROVIRAL THERAPY
     Dosage: TAKING AT CONCEPTION
     Route: 048
     Dates: end: 20100323
  6. RALTEGRAVIR [Suspect]
     Indication: ANTIRETROVIRAL THERAPY
     Dosage: TAKING AT CONCEPTION
     Route: 048
     Dates: end: 20100323
  7. VIREAD [Suspect]
     Indication: ANTIRETROVIRAL THERAPY
     Dosage: NOT TAKING AT CONCEPTION
     Route: 048
     Dates: start: 20100324, end: 20100513
  8. COMBIVIR [Suspect]
     Indication: ANTIRETROVIRAL THERAPY
     Dosage: NOT TAKING AT CONCEPTION, 2TAB/CAP DAILY
     Route: 048
     Dates: start: 20100514

REACTIONS (2)
  - HYPOTENSION [None]
  - UROSEPSIS [None]
